FAERS Safety Report 5816964-5 (Version None)
Quarter: 2008Q3

REPORT INFORMATION
  Report Type: 
  Country: None (occurrence: None)
  Receive Date: 20080722
  Receipt Date: 20080716
  Transmission Date: 20090109
  Serious: Yes (Death)
  Sender: FDA-Public Use
  Company Number: PHHY2008JP14319

PATIENT
  Age: 47 Year
  Sex: Female

DRUGS (3)
  1. CYCLOSPORINE [Suspect]
     Dosage: 3 MG/KG/DAY
     Route: 042
  2. FLUDARABINE PHOSPHATE [Concomitant]
     Dosage: 30 MG/M^2
     Route: 042
  3. BUSULFAN [Concomitant]
     Dosage: 4 MG/KG
     Route: 048

REACTIONS (1)
  - LEUKAEMIA RECURRENT [None]
